FAERS Safety Report 15860785 (Version 2)
Quarter: 2020Q1

REPORT INFORMATION
  Report Type: Spontaneous
  Country: US (occurrence: US)
  Receive Date: 20190124
  Receipt Date: 20200116
  Transmission Date: 20200409
  Serious: No
  Sender: FDA-Public Use
  Company Number: US-TORRENT-00007320

PATIENT
  Sex: Female

DRUGS (2)
  1. DIAZEPAM. [Concomitant]
     Active Substance: DIAZEPAM
     Indication: PRODUCT USED FOR UNKNOWN INDICATION
     Dosage: 10 MG, ONCE A DAY IN MORNING
  2. DULOXETINE. [Suspect]
     Active Substance: DULOXETINE
     Indication: MUSCULOSKELETAL PAIN
     Dates: start: 20181210

REACTIONS (6)
  - Tremor [Unknown]
  - Dysuria [Unknown]
  - Feeling abnormal [Unknown]
  - Taste disorder [Unknown]
  - Erythema [Unknown]
  - Insomnia [Unknown]

NARRATIVE: CASE EVENT DATE: 20181213
